FAERS Safety Report 5937137-1 (Version None)
Quarter: 2008Q4

REPORT INFORMATION
  Report Type: 
  Country: None (occurrence: None)
  Receive Date: 20081031
  Receipt Date: 20081027
  Transmission Date: 20090506
  Serious: Yes (Life-Threatening, Other)
  Sender: FDA-Public Use
  Company Number: PHHY2008DE26406

PATIENT
  Sex: Male

DRUGS (4)
  1. RASILEZ [Suspect]
     Dosage: 300 MG, UNK
     Dates: start: 20080901
  2. CARMEN [Concomitant]
  3. COAPROVEL [Concomitant]
  4. CYNT ^BEIERSDORF^ [Concomitant]

REACTIONS (7)
  - ANXIETY [None]
  - BURNING SENSATION [None]
  - CHILLS [None]
  - ERYTHEMA [None]
  - FEAR OF DEATH [None]
  - FEELING HOT [None]
  - OEDEMA PERIPHERAL [None]
